FAERS Safety Report 6076761-5 (Version None)
Quarter: 2009Q1

REPORT INFORMATION
  Report Type: 
  Country: None (occurrence: None)
  Receive Date: 20090213
  Receipt Date: 20090204
  Transmission Date: 20090719
  Serious: Yes (Other)
  Sender: FDA-Public Use
  Company Number: US-JNJFOC-20090201184

PATIENT
  Sex: Female
  Weight: 74.39 kg

DRUGS (4)
  1. REMICADE [Suspect]
     Indication: PSORIASIS
     Route: 042
  2. ATIVAN [Concomitant]
     Indication: NERVOUSNESS
  3. STOOL SOFTENER [Concomitant]
  4. ESTROGENIC SUBSTANCE [Concomitant]

REACTIONS (2)
  - DRUG INEFFECTIVE [None]
  - WEIGHT INCREASED [None]
